FAERS Safety Report 16648879 (Version 4)
Quarter: 2025Q3

REPORT INFORMATION
  Report Type: Spontaneous
  Country: CA (occurrence: CA)
  Receive Date: 20190730
  Receipt Date: 20250703
  Transmission Date: 20251021
  Serious: Yes (Death, Life-Threatening, Hospitalization, Other)
  Sender: TEVA
  Company Number: CA-TEVA-2019-CA-1084353

PATIENT
  Age: 76 Year
  Sex: Male

DRUGS (15)
  1. PREDNISOLONE [Suspect]
     Active Substance: PREDNISOLONE
     Indication: Immunosuppression
     Route: 065
  2. LABETALOL [Concomitant]
     Active Substance: LABETALOL
     Indication: Product used for unknown indication
     Route: 065
  3. ARANESP [Concomitant]
     Active Substance: DARBEPOETIN ALFA
     Indication: Product used for unknown indication
  4. PREDNISONE [Suspect]
     Active Substance: PREDNISONE
     Indication: Immunosuppressant drug therapy
     Dosage: DOSE FORM: NOT SPECIFIED
     Route: 065
  5. PREDNISONE [Suspect]
     Active Substance: PREDNISONE
     Indication: Immunosuppressant drug therapy
     Route: 065
  6. TACROLIMUS [Suspect]
     Active Substance: TACROLIMUS
     Indication: Immunosuppressant drug therapy
     Route: 065
  7. TACROLIMUS [Suspect]
     Active Substance: TACROLIMUS
     Indication: Immunosuppressant drug therapy
     Route: 065
  8. TACROLIMUS [Suspect]
     Active Substance: TACROLIMUS
     Indication: Immunosuppressant drug therapy
     Route: 065
  9. MYCOPHENOLATE MOFETIL [Suspect]
     Active Substance: MYCOPHENOLATE MOFETIL
     Indication: Immunosuppressant drug therapy
     Route: 065
  10. MYCOPHENOLATE MOFETIL [Suspect]
     Active Substance: MYCOPHENOLATE MOFETIL
     Indication: Immunosuppressant drug therapy
     Route: 065
  11. AMLODIPINE [Concomitant]
     Active Substance: AMLODIPINE BESYLATE
     Indication: Product used for unknown indication
     Route: 065
  12. CALCITRIOL [Concomitant]
     Active Substance: CALCITRIOL
     Indication: Product used for unknown indication
     Route: 065
  13. DARBEPOETIN ALFA [Concomitant]
     Active Substance: DARBEPOETIN ALFA
     Indication: Product used for unknown indication
     Route: 065
  14. MYCOPHENOLATE MOFETIL [Suspect]
     Active Substance: MYCOPHENOLATE MOFETIL
     Indication: Renal transplant
     Route: 065
  15. MYCOPHENOLATE MOFETIL [Suspect]
     Active Substance: MYCOPHENOLATE MOFETIL
     Indication: Renal transplant
     Route: 065

REACTIONS (17)
  - Mycobacterium marinum infection [Fatal]
  - Weight decreased [Fatal]
  - Asthenia [Fatal]
  - Candida infection [Fatal]
  - Enterobacter infection [Fatal]
  - Loss of personal independence in daily activities [Fatal]
  - Pseudomonas infection [Fatal]
  - Staphylococcal infection [Fatal]
  - Zoonosis [Fatal]
  - Zoonotic bacterial infection [Fatal]
  - Brain injury [Fatal]
  - Cardiac arrest [Fatal]
  - Decreased appetite [Fatal]
  - Multiple organ dysfunction syndrome [Fatal]
  - Product use in unapproved indication [Fatal]
  - Skin lesion [Fatal]
  - Transplant failure [Fatal]
